FAERS Safety Report 4383177-6 (Version None)
Quarter: 2004Q2

REPORT INFORMATION
  Report Type: 
  Country: None (occurrence: None)
  Receive Date: 20040618
  Receipt Date: 20040607
  Transmission Date: 20050107
  Serious: Yes (Death)
  Sender: FDA-Public Use
  Company Number: 2004038071

PATIENT
  Age: 59 Year
  Sex: Male

DRUGS (2)
  1. FLUCONAZOLE [Suspect]
     Indication: PERITONEAL CANDIDIASIS
     Dosage: 800 MG (100 MG)
  2. ANTIBIOTICS [Concomitant]

REACTIONS (3)
  - CANDIDA SEPSIS [None]
  - CARDIOGENIC SHOCK [None]
  - INFECTION [None]
